FAERS Safety Report 13004769 (Version 1)
Quarter: 2016Q4

REPORT INFORMATION
  Report Type: Report from Study
  Country: None (occurrence: US)
  Receive Date: 20161207
  Receipt Date: 20161207
  Transmission Date: 20170207
  Serious: Yes (Hospitalization)
  Sender: FDA-Public Use
  Company Number: US-ABBVIE-16K-163-1791056-00

PATIENT
  Age: 80 Year
  Sex: Female

DRUGS (1)
  1. HUMIRA [Suspect]
     Active Substance: ADALIMUMAB
     Indication: CROHN^S DISEASE
     Route: 058
     Dates: start: 20160826

REACTIONS (8)
  - Pulmonary embolism [Unknown]
  - Deep vein thrombosis [Recovered/Resolved]
  - Vision blurred [Unknown]
  - Fall [Unknown]
  - Intervertebral disc protrusion [Unknown]
  - Thrombosis [Unknown]
  - Vomiting [Unknown]
  - Spinal fracture [Recovered/Resolved]

NARRATIVE: CASE EVENT DATE: 2016
